FAERS Safety Report 25944377 (Version 1)
Quarter: 2025Q4

REPORT INFORMATION
  Report Type: Spontaneous
  Country: US (occurrence: US)
  Receive Date: 20251021
  Receipt Date: 20251021
  Transmission Date: 20260118
  Serious: No
  Sender: GLAND PHARMA LTD
  Company Number: US-GLANDPHARMA-US-2025GLNSPO01869

PATIENT

DRUGS (1)
  1. METOPROLOL TARTRATE [Suspect]
     Active Substance: METOPROLOL TARTRATE
     Indication: Product used for unknown indication
     Route: 065
     Dates: start: 202509

REACTIONS (6)
  - Feeling jittery [Unknown]
  - Tachycardia [Unknown]
  - Anxiety [Unknown]
  - Chills [Unknown]
  - Drug intolerance [Unknown]
  - Nervousness [Unknown]

NARRATIVE: CASE EVENT DATE: 20250901
